FAERS Safety Report 10222941 (Version 1)
Quarter: 2014Q2

REPORT INFORMATION
  Report Type: Report from Study
  Country: AR (occurrence: AR)
  Receive Date: 20140607
  Receipt Date: 20140607
  Transmission Date: 20141212
  Serious: Yes (Death, Hospitalization)
  Sender: FDA-Public Use
  Company Number: AR-ABBVIE-14P-007-1244338-00

PATIENT
  Sex: Female

DRUGS (1)
  1. HUMIRA [Suspect]
     Indication: RHEUMATOID ARTHRITIS
     Route: 058
     Dates: start: 20100801

REACTIONS (3)
  - Peripheral embolism [Fatal]
  - Depression [Fatal]
  - Coagulopathy [Fatal]
